FAERS Safety Report 7348429-6 (Version None)
Quarter: 2011Q1

REPORT INFORMATION
  Report Type: 
  Country: None (occurrence: None)
  Receive Date: 20110311
  Receipt Date: 20110228
  Transmission Date: 20110831
  Serious: Yes (Hospitalization)
  Sender: FDA-Public Use
  Company Number: PHHY2011US16728

PATIENT
  Sex: Male

DRUGS (1)
  1. NEORAL [Suspect]
     Dosage: 100 MG, BID

REACTIONS (1)
  - LOSS OF CONSCIOUSNESS [None]
